FAERS Safety Report 7358294-9 (Version None)
Quarter: 2011Q1

REPORT INFORMATION
  Report Type: 
  Country: None (occurrence: None)
  Receive Date: 20110317
  Receipt Date: 20110309
  Transmission Date: 20110831
  Serious: Yes (Other)
  Sender: FDA-Public Use
  Company Number: US-ROCHE-765537

PATIENT
  Sex: Male
  Weight: 82.1 kg

DRUGS (3)
  1. 5-FU [Concomitant]
  2. CAPECITABINE [Suspect]
     Dosage: DOSE: 1500 MG IN MORNING AND 1500 MG IN EVENING
     Route: 048
     Dates: start: 20100901, end: 20110221
  3. LEUCOVORIN CALCIUM [Concomitant]

REACTIONS (2)
  - DRUG INEFFECTIVE [None]
  - TUMOUR MARKER INCREASED [None]
